FAERS Safety Report 19691665 (Version 2)
Quarter: 2021Q4

REPORT INFORMATION
  Report Type: Spontaneous
  Country: US (occurrence: US)
  Receive Date: 20210812
  Receipt Date: 20211006
  Transmission Date: 20220303
  Serious: No
  Sender: FDA-Public Use
  Company Number: 2021A670883

PATIENT
  Age: 26876 Day
  Sex: Female
  Weight: 68.5 kg

DRUGS (3)
  1. BYDUREON BCISE [Suspect]
     Active Substance: EXENATIDE
     Indication: Diabetes mellitus
     Dosage: 2MG/ML ONCE A WEEK
     Route: 058
     Dates: start: 202103
  2. BYDUREON BCISE [Suspect]
     Active Substance: EXENATIDE
     Indication: Diabetes mellitus
     Route: 058
     Dates: start: 2015, end: 20210627
  3. BYETTA [Concomitant]
     Active Substance: EXENATIDE
     Indication: Diabetes mellitus
     Route: 065

REACTIONS (5)
  - Injection site pain [Unknown]
  - Injection site inflammation [Recovered/Resolved]
  - Gastrointestinal bacterial overgrowth [Unknown]
  - Adrenal disorder [Unknown]
  - Sensitisation [Unknown]

NARRATIVE: CASE EVENT DATE: 20210606
